FAERS Safety Report 9442970 (Version 1)
Quarter: 2013Q3

REPORT INFORMATION
  Report Type: Spontaneous
  Country: US (occurrence: None)
  Receive Date: 20130805
  Receipt Date: 20130805
  Transmission Date: 20140515
  Serious: Yes (Other)
  Sender: FDA-Public Use
  Company Number: None

PATIENT
  Age: 51 Year
  Sex: Female
  Weight: 72.58 kg

DRUGS (1)
  1. PREDNISONE [Suspect]
     Indication: RHEUMATOID ARTHRITIS
     Dosage: 10MG QD PO
     Route: 048
     Dates: start: 20130705, end: 20130723

REACTIONS (3)
  - Impaired work ability [None]
  - Activities of daily living impaired [None]
  - Product substitution issue [None]
